FAERS Safety Report 7942055-3 (Version None)
Quarter: 2011Q4

REPORT INFORMATION
  Report Type: 
  Country: None (occurrence: None)
  Receive Date: 20111128
  Receipt Date: 20111128
  Transmission Date: 20120403
  Serious: Yes (Other)
  Sender: FDA-Public Use
  Company Number: None

PATIENT
  Age: 15 Year
  Sex: Male
  Weight: 58.967 kg

DRUGS (4)
  1. VYVANSE [Concomitant]
  2. BUPROPION HYDROCHLORIDE [Suspect]
     Indication: DEPRESSION
     Dosage: 1
     Route: 048
     Dates: start: 20111014, end: 20111025
  3. BUPROPION HYDROCHLORIDE [Suspect]
     Indication: TOBACCO ABUSE
     Dosage: 1
     Route: 048
     Dates: start: 20111014, end: 20111025
  4. RISPERDAL [Concomitant]

REACTIONS (5)
  - EYE SWELLING [None]
  - PRURITUS [None]
  - SKIN BURNING SENSATION [None]
  - PAIN OF SKIN [None]
  - ERYTHEMA [None]
